FAERS Safety Report 4583788-9 (Version None)
Quarter: 2005Q1

REPORT INFORMATION
  Report Type: 
  Country: None (occurrence: None)
  Receive Date: 20050216
  Receipt Date: 20041108
  Transmission Date: 20050727
  Serious: No
  Sender: FDA-Public Use
  Company Number: US-GLAXOSMITHKLINE-A0533081A

PATIENT
  Age: 74 Year
  Sex: Female
  Weight: 76.8 kg

DRUGS (4)
  1. LOTRONEX [Suspect]
     Indication: IRRITABLE BOWEL SYNDROME
     Dosage: 1MG TWICE PER DAY
     Route: 048
     Dates: start: 20041025
  2. DIAZIDE [Concomitant]
     Indication: HYPERTENSION
     Route: 048
     Dates: start: 19860128
  3. NIACIN [Concomitant]
     Dosage: 500MG TWICE PER DAY
     Route: 048
     Dates: start: 19940428
  4. COUMADIN [Concomitant]
     Indication: PROPHYLAXIS
     Dosage: 4MG PER DAY
     Route: 048
     Dates: start: 19930803

REACTIONS (1)
  - INTERNATIONAL NORMALISED RATIO INCREASED [None]
